FAERS Safety Report 4323490-1 (Version None)
Quarter: 2004Q1

REPORT INFORMATION
  Report Type: 
  Country: None (occurrence: None)
  Receive Date: 20040325
  Receipt Date: 20040304
  Transmission Date: 20041129
  Serious: Yes (Hospitalization, Other)
  Sender: FDA-Public Use
  Company Number: PHBS2004BE03869

PATIENT
  Age: 42 Year
  Sex: Female

DRUGS (3)
  1. LAMISIL [Suspect]
     Indication: TINEA PEDIS
     Dosage: UNK, UNK
     Route: 048
     Dates: start: 20040204, end: 20040211
  2. SERTRALINE HCL [Suspect]
     Dosage: 50 MG, QD
     Route: 048
     Dates: start: 20010101
  3. MAGNESIUM [Concomitant]
     Dosage: 1 TABLET/D
     Route: 048

REACTIONS (7)
  - ASTHENIA [None]
  - CONCOMITANT DISEASE AGGRAVATED [None]
  - DRUG INTERACTION [None]
  - FIBROMYALGIA [None]
  - IMPAIRED WORK ABILITY [None]
  - INSOMNIA [None]
  - PAIN [None]
